FAERS Safety Report 10380275 (Version 1)
Quarter: 2014Q3

REPORT INFORMATION
  Report Type: Spontaneous
  Country: US (occurrence: US)
  Receive Date: 20140813
  Receipt Date: 20140813
  Transmission Date: 20150326
  Serious: Yes (Hospitalization)
  Sender: FDA-Public Use
  Company Number: US-ASTRAZENECA-2014SE56821

PATIENT
  Age: 78 Year
  Sex: Female
  Weight: 71.2 kg

DRUGS (7)
  1. BABY ASPIRIN OTC [Concomitant]
     Route: 048
  2. MELOXICAM. [Concomitant]
     Active Substance: MELOXICAM
     Indication: ARTHRITIS
     Route: 048
     Dates: start: 201306
  3. CALCIUM OTC [Concomitant]
     Dosage: NR DAILY
     Route: 048
  4. ACUVIL OTC [Concomitant]
     Indication: MACULAR DEGENERATION
     Dosage: NR DAILY
     Route: 048
  5. MULTIVITAMIN OTC [Concomitant]
     Dosage: NR DAILY
     Route: 048
  6. SYMBICORT [Suspect]
     Active Substance: BUDESONIDE\FORMOTEROL FUMARATE DIHYDRATE
     Indication: CHRONIC OBSTRUCTIVE PULMONARY DISEASE
     Dosage: 80/4.5 BID
     Route: 055
     Dates: start: 201310
  7. VIT D OTC [Concomitant]
     Dosage: NR DAILY
     Route: 048

REACTIONS (1)
  - Pneumonia bacterial [Recovering/Resolving]

NARRATIVE: CASE EVENT DATE: 201404
